FAERS Safety Report 16298666 (Version 1)
Quarter: 2019Q2

REPORT INFORMATION
  Report Type: Spontaneous
  Country: BR (occurrence: BR)
  Receive Date: 20190510
  Receipt Date: 20190510
  Transmission Date: 20190711
  Serious: Yes (Hospitalization, Other)
  Sender: FDA-Public Use
  Company Number: BR-NODEN PHARMA DAC-NOD-2019-000079

PATIENT
  Sex: Female
  Weight: 118 kg

DRUGS (1)
  1. RASILEZ [Suspect]
     Active Substance: ALISKIREN
     Indication: HYPERTENSION
     Dosage: 1 DOSAGE FORM, QD
     Route: 048

REACTIONS (12)
  - Tachycardia [Recovering/Resolving]
  - Type 2 diabetes mellitus [Recovered/Resolved]
  - Fluid retention [Recovered/Resolved]
  - Arrhythmia [Recovering/Resolving]
  - Obesity [Unknown]
  - Exposure to extreme temperature [Recovering/Resolving]
  - Vomiting [Recovering/Resolving]
  - Swelling [Recovered/Resolved]
  - Hyperhidrosis [Recovering/Resolving]
  - Malaise [Recovering/Resolving]
  - Diarrhoea [Recovering/Resolving]
  - Emotional disorder [Recovered/Resolved]
